FAERS Safety Report 6471007-8 (Version None)
Quarter: 2009Q4

REPORT INFORMATION
  Report Type: 
  Country: None (occurrence: None)
  Receive Date: 20091203
  Receipt Date: 20080128
  Transmission Date: 20100525
  Serious: Yes (Hospitalization)
  Sender: FDA-Public Use
  Company Number: US-ELI_LILLY_AND_COMPANY-US200801005893

PATIENT
  Sex: Female
  Weight: 92.517 kg

DRUGS (21)
  1. BYETTA [Suspect]
     Indication: TYPE 2 DIABETES MELLITUS
     Dosage: 10 UG, 2/D
     Route: 058
     Dates: start: 20060301, end: 20071202
  2. BYETTA [Suspect]
     Dosage: 10 UG, 2/D
     Route: 058
     Dates: start: 20071201
  3. HYZAAR [Concomitant]
     Indication: CARDIAC DISORDER
     Dosage: UNK, DAILY (1/D)
     Route: 048
  4. TICLOPIDINE HCL [Concomitant]
     Indication: CARDIAC DISORDER
     Dosage: 500 MG, DAILY (1/D)
     Route: 048
  5. POTASSIUM CHLORIDE [Concomitant]
     Indication: CARDIAC DISORDER
     Dosage: 40 MG, DAILY (1/D)
     Route: 048
  6. ZETIA [Concomitant]
     Indication: BLOOD CHOLESTEROL INCREASED
     Dosage: 10 MG, DAILY (1/D)
     Route: 048
     Dates: start: 20071101
  7. FUROSEMIDE [Concomitant]
     Indication: DIURETIC THERAPY
     Dosage: 40 MG, DAILY (1/D)
     Route: 048
     Dates: start: 20070501
  8. CLONIDINE HCL [Concomitant]
     Indication: CARDIAC DISORDER
     Dosage: 0.2 MG, DAILY (1/D)
     Route: 048
     Dates: start: 20070501
  9. VERAPAMIL HCL [Concomitant]
     Dosage: 180 MG, DAILY (1/D)
     Route: 048
     Dates: start: 20071201
  10. ACTOS [Concomitant]
     Indication: DIABETES MELLITUS
     Dosage: UNK, DAILY (1/D)
     Route: 048
     Dates: start: 20070301
  11. METFORMIN HYDROCHLORIDE [Concomitant]
     Indication: DIABETES MELLITUS
     Dosage: UNK, DAILY (1/D)
     Route: 048
     Dates: start: 20070301
  12. ASPIRIN [Concomitant]
     Dosage: 81 MG, 2/D
     Route: 048
     Dates: start: 20060301
  13. CALCIUM WITH VITAMIN D /00944201/ [Concomitant]
     Dosage: UNK, 2/D
     Route: 048
     Dates: start: 20060801
  14. NIACIN [Concomitant]
     Dosage: 500 MG, DAILY (1/D)
     Route: 048
     Dates: start: 20070201
  15. FOLIC ACID [Concomitant]
     Dosage: 800 MG, DAILY (1/D)
     Route: 048
     Dates: start: 20070201
  16. FISH OIL [Concomitant]
     Indication: BLOOD CHOLESTEROL
     Dosage: 1000 MG, DAILY (1/D)
     Route: 048
     Dates: start: 20070201
  17. CENTRUM SILVER [Concomitant]
  18. COQ10 [Concomitant]
     Indication: BLOOD PRESSURE
     Dosage: 600 MG, DAILY (1/D)
     Route: 048
     Dates: start: 20070501
  19. LYRICA [Concomitant]
     Indication: NEUROPATHY PERIPHERAL
     Dates: end: 20071201
  20. ALPHA LIPOIC ACID [Concomitant]
     Indication: NEUROPATHY PERIPHERAL
     Dosage: 250 MG, DAILY (1/D)
     Route: 048
     Dates: start: 20071201
  21. TOPROL-XL [Concomitant]
     Dates: end: 20071202

REACTIONS (6)
  - ASTHMA [None]
  - CHEST PAIN [None]
  - DECREASED APPETITE [None]
  - DYSPNOEA [None]
  - NAUSEA [None]
  - WEIGHT DECREASED [None]
